FAERS Safety Report 16904205 (Version 1)
Quarter: 2019Q4

REPORT INFORMATION
  Report Type: Spontaneous
  Country: US (occurrence: US)
  Receive Date: 20191009
  Receipt Date: 20191009
  Transmission Date: 20200122
  Serious: Yes (Other)
  Sender: FDA-Public Use
  Company Number: None

PATIENT
  Age: 0 Day
  Sex: Male

DRUGS (13)
  1. ALPHAGAN P OPHTH [Concomitant]
  2. LEVOTHYROXINE. [Concomitant]
     Active Substance: LEVOTHYROXINE
  3. LATANOPROST OPHTH [Concomitant]
  4. TESTOSTERONE CYPIONATE INJECTION [Concomitant]
     Active Substance: TESTOSTERONE CYPIONATE
  5. FUROSEMIDE. [Concomitant]
     Active Substance: FUROSEMIDE
  6. FLECANIDIE [Concomitant]
  7. POTASSIUM CHLORIDE. [Concomitant]
     Active Substance: POTASSIUM CHLORIDE
  8. LISINOPRIL. [Concomitant]
     Active Substance: LISINOPRIL
  9. DILTIAZEM. [Concomitant]
     Active Substance: DILTIAZEM
  10. GENOTROPIN [Suspect]
     Active Substance: SOMATROPIN
     Indication: HYPOPITUITARISM
     Route: 058
  11. HYDROCORTISONE. [Concomitant]
     Active Substance: HYDROCORTISONE
  12. ATORVASTATIN [Concomitant]
     Active Substance: ATORVASTATIN
  13. AZOPT OPHTH [Concomitant]

REACTIONS (1)
  - Prostate cancer [None]

NARRATIVE: CASE EVENT DATE: 19470804
